FAERS Safety Report 19603072 (Version 3)
Quarter: 2021Q3

REPORT INFORMATION
  Report Type: Spontaneous
  Country: US (occurrence: US)
  Receive Date: 20210723
  Receipt Date: 20210813
  Transmission Date: 20211014
  Serious: Yes (Other)
  Sender: FDA-Public Use
  Company Number: US-TEVA-2021-US-1934154

PATIENT
  Age: 65 Year
  Sex: Female

DRUGS (7)
  1. CLONAZEPAM TEVA [Suspect]
     Active Substance: CLONAZEPAM
     Indication: ANXIETY
     Dosage: AT NIGHT
     Dates: start: 2009, end: 2019
  2. CLONAZEPAM ACTAVIS [Suspect]
     Active Substance: CLONAZEPAM
     Route: 065
  3. ESTROGEN [Concomitant]
     Active Substance: ESTROGENS
  4. TESTOSTERONE. [Concomitant]
     Active Substance: TESTOSTERONE
  5. CLONAZEPAM TEVA [Suspect]
     Active Substance: CLONAZEPAM
     Dosage: CUTTING THE 1 MG TABLET IN FOURTHS
     Route: 065
  6. CYCLOBENZAPRINE. [Suspect]
     Active Substance: CYCLOBENZAPRINE
     Route: 065
  7. PROGESTERONE. [Concomitant]
     Active Substance: PROGESTERONE

REACTIONS (9)
  - Generalised tonic-clonic seizure [Unknown]
  - Fear [Unknown]
  - Drug ineffective [Unknown]
  - Transient ischaemic attack [Unknown]
  - Wrong technique in product usage process [Unknown]
  - Rash [Unknown]
  - Off label use [Unknown]
  - Drug hypersensitivity [Unknown]
  - Insomnia [Unknown]
